FAERS Safety Report 16240355 (Version 3)
Quarter: 2019Q3

REPORT INFORMATION
  Report Type: Spontaneous
  Country: DE (occurrence: DE)
  Receive Date: 20190425
  Receipt Date: 20190703
  Transmission Date: 20191004
  Serious: Yes (Life-Threatening, Other)
  Sender: FDA-Public Use
  Company Number: DE-MYLANLABS-2019M1037766

PATIENT
  Age: 51 Year
  Sex: Male
  Weight: 75 kg

DRUGS (4)
  1. ITRACONAZOLE. [Suspect]
     Active Substance: ITRACONAZOLE
     Dosage: 200 MILLIGRAM, QD (INITIAL TGL. 200 MG F?R 4 WOCHEN, AUSSCHLEICHEN AUF 3X100 MG/WOCHE)
     Route: 048
     Dates: start: 20171201, end: 201802
  2. ITRACONAZOLE. [Suspect]
     Active Substance: ITRACONAZOLE
     Dosage: 600 MILLIGRAM, QW (3X200MG/WOCHE)
     Route: 048
     Dates: start: 201804, end: 201808
  3. ITRACONAZOLE. [Suspect]
     Active Substance: ITRACONAZOLE
     Indication: ONYCHOMYCOSIS
     Dosage: INITIAL TGL. 200 MG F?R 4 WOCHEN, AUSSCHLEICHEN AUF 3X100 MG/WOCHE
     Route: 048
     Dates: start: 20171201, end: 20180903
  4. ITRACONAZOLE. [Suspect]
     Active Substance: ITRACONAZOLE
     Dosage: 200 MILLIGRAM, QOD (200MG JEDEN 2. TAG )
     Route: 048
     Dates: start: 201803, end: 201804

REACTIONS (4)
  - Headache [Recovered/Resolved]
  - Coagulopathy [Recovered/Resolved]
  - Adverse reaction [Recovered/Resolved]
  - Subdural haematoma [Recovered/Resolved]

NARRATIVE: CASE EVENT DATE: 20180601
